FAERS Safety Report 5115727-6 (Version None)
Quarter: 2006Q3

REPORT INFORMATION
  Report Type: 
  Country: None (occurrence: None)
  Receive Date: 20060927
  Receipt Date: 20060724
  Transmission Date: 20061208
  Serious: Yes (Life-Threatening, Hospitalization)
  Sender: FDA-Public Use
  Company Number: DE-ROCHE-456591

PATIENT
  Age: 22 Year
  Sex: Female
  Weight: 52 kg

DRUGS (2)
  1. PEG-INTERFERON A-2A (RO 25-8310) [Suspect]
     Route: 058
     Dates: start: 20060320, end: 20060904
  2. RIBAVIRIN [Suspect]
     Route: 065
     Dates: start: 20060320, end: 20060721

REACTIONS (2)
  - DIABETES MELLITUS [None]
  - KETOACIDOSIS [None]
